FAERS Safety Report 8775192 (Version 1)
Quarter: 2012Q4

REPORT INFORMATION
  Report Type: 
  Country: US (occurrence: US)
  Receive Date: 20120910
  Receipt Date: 20120910
  Transmission Date: 20130627
  Serious: Yes (Hospitalization)
  Sender: FDA-Public Use
  Company Number: US-PFIZER INC-2012221387

PATIENT
  Age: 44 Year
  Sex: Female
  Weight: 65.76 kg

DRUGS (5)
  1. LIPITOR [Suspect]
     Indication: BLOOD CHOLESTEROL INCREASED
     Dosage: 80 mg, daily
     Route: 048
  2. CRESTOR [Suspect]
     Indication: BLOOD CHOLESTEROL INCREASED
     Dosage: UNK
     Dates: start: 2006
  3. ATENOLOL [Concomitant]
     Indication: CARDIAC DISORDER
     Dosage: 25 mg, daily
  4. ZETIA [Concomitant]
     Dosage: UNK
  5. LISINOPRIL [Concomitant]
     Indication: CARDIAC DISORDER
     Dosage: 5 mg, daily

REACTIONS (6)
  - Uterine disorder [Unknown]
  - Hearing impaired [Not Recovered/Not Resolved]
  - Tinnitus [Not Recovered/Not Resolved]
  - Tinnitus [Not Recovered/Not Resolved]
  - Discomfort [Unknown]
  - Drug ineffective [Unknown]
